FAERS Safety Report 6260595-2 (Version None)
Quarter: 2009Q4

REPORT INFORMATION
  Report Type: 
  Country: None (occurrence: None)
  Receive Date: 20090706
  Receipt Date: 20090623
  Transmission Date: 20100525
  Serious: Yes (Death, Other)
  Sender: FDA-Public Use
  Company Number: 2009EU002488

PATIENT
  Age: 40 Year
  Sex: Female

DRUGS (3)
  1. TACROLIMUS [Suspect]
     Indication: INTESTINAL TRANSPLANT
  2. CORTICOSTEROID NOS(CORTICOSTEROID NOS) [Suspect]
     Indication: INTESTINAL TRANSPLANT
     Dosage: 16 MG, 4 MG,
  3. AZATHIOPRINE [Suspect]
     Indication: IMMUNOSUPPRESSION
     Dosage: 0.5 MG/KG,

REACTIONS (2)
  - ASPERGILLOSIS [None]
  - INTESTINE TRANSPLANT REJECTION [None]
